FAERS Safety Report 23946075 (Version 1)
Quarter: 2024Q2

REPORT INFORMATION
  Report Type: Spontaneous
  Country: US (occurrence: None)
  Receive Date: 20240605
  Receipt Date: 20240605
  Transmission Date: 20240716
  Serious: No
  Sender: FDA-Public Use
  Company Number: None

PATIENT
  Age: 72 Year
  Sex: Male

DRUGS (1)
  1. VALCHLOR [Suspect]
     Active Substance: MECHLORETHAMINE
     Indication: Cutaneous T-cell lymphoma
     Dosage: OTHER QUANTITY : 0.016 MG;?FREQUENCY : DAILY;?
     Route: 061
     Dates: start: 20210811, end: 20240326

REACTIONS (4)
  - Rash [None]
  - Dermatitis contact [None]
  - Hypersensitivity [None]
  - Drug hypersensitivity [None]

NARRATIVE: CASE EVENT DATE: 20240326
